FAERS Safety Report 7313691-2 (Version None)
Quarter: 2011Q1

REPORT INFORMATION
  Report Type: 
  Country: None (occurrence: None)
  Receive Date: 20110225
  Receipt Date: 20110214
  Transmission Date: 20110831
  Serious: Yes (Other)
  Sender: FDA-Public Use
  Company Number: GB-ELI_LILLY_AND_COMPANY-GB201102003509

PATIENT
  Age: 9 Year
  Sex: Male
  Weight: 34.8 kg

DRUGS (1)
  1. STRATTERA [Suspect]
     Indication: ATTENTION DEFICIT/HYPERACTIVITY DISORDER
     Dosage: 10 MG, UNK
     Route: 048
     Dates: start: 20101010, end: 20101013

REACTIONS (3)
  - PRURITUS [None]
  - DERMATITIS [None]
  - VOMITING [None]
